FAERS Safety Report 9232777 (Version 1)
Quarter: 2013Q2

REPORT INFORMATION
  Report Type: Spontaneous
  Country: NL (occurrence: NL)
  Receive Date: 20130416
  Receipt Date: 20130416
  Transmission Date: 20140414
  Serious: Yes (Hospitalization)
  Sender: FDA-Public Use
  Company Number: NL-JNJFOC-20130402806

PATIENT
  Age: 54 Year
  Sex: Male

DRUGS (14)
  1. DUROGESIC [Suspect]
     Indication: PAIN
     Route: 062
     Dates: start: 20080418
  2. NALTREXON [Interacting]
     Indication: CONSTIPATION
     Route: 065
     Dates: start: 20130330, end: 20130330
  3. FUROSEMIDE [Concomitant]
     Route: 065
  4. ATENOLOL [Concomitant]
     Route: 065
  5. TAMSULOSIN [Concomitant]
     Route: 065
  6. LEXAPRO [Concomitant]
     Route: 065
  7. PANTOPRAZOL [Concomitant]
     Route: 065
  8. PRAVASTATIN [Concomitant]
     Route: 065
  9. PROMETHAZIN [Concomitant]
     Route: 065
  10. TEMAZEPAM [Concomitant]
     Dosage: TIMES PER 1 AS NECESSARY
     Route: 065
  11. NITROGLYCERINE [Concomitant]
     Route: 065
  12. NOVORAPID FLEXPEN [Concomitant]
     Dosage: 100E/ML TIMES PER 1 DF 3ML
     Route: 065
  13. GEMFIBROZIL [Concomitant]
     Route: 065
  14. DIAZEPAM [Concomitant]
     Route: 065

REACTIONS (2)
  - Withdrawal syndrome [Recovering/Resolving]
  - Drug interaction [Recovering/Resolving]
